FAERS Safety Report 21733432 (Version 1)
Quarter: 2022Q4

REPORT INFORMATION
  Report Type: Other
  Country: GR (occurrence: GR)
  Receive Date: 20221215
  Receipt Date: 20221215
  Transmission Date: 20230112
  Serious: Yes (Other)
  Sender: FDA-Public Use
  Company Number: GR-CELLTRION INC.-2022GR020908

PATIENT

DRUGS (15)
  1. RITUXIMAB [Suspect]
     Active Substance: RITUXIMAB
     Indication: B-cell lymphoma
     Dosage: 1ST SYSTEMIC TREATMENT
     Route: 042
     Dates: start: 20210104, end: 20210510
  2. RITUXIMAB [Suspect]
     Active Substance: RITUXIMAB
     Dosage: 2ND SYSTEMIC TREATMENT
     Route: 042
     Dates: start: 20211116, end: 20220615
  3. DOXORUBICIN HYDROCHLORIDE [Suspect]
     Active Substance: DOXORUBICIN HYDROCHLORIDE
     Indication: B-cell lymphoma
     Dosage: 1ST SYSTEMIC TREATMENT
     Dates: start: 20210104, end: 20210510
  4. ONCOVIN [Suspect]
     Active Substance: VINCRISTINE SULFATE
     Indication: B-cell lymphoma
     Dosage: 1ST SYSTEMIC TREATMENT
     Dates: start: 20210104, end: 20210510
  5. METHYLPREDNISOLONE [Suspect]
     Active Substance: METHYLPREDNISOLONE
     Indication: B-cell lymphoma
     Dosage: 2ND SYSTEMIC TREATMENT
     Dates: start: 20211116, end: 20220615
  6. METHYLPREDNISOLONE [Suspect]
     Active Substance: METHYLPREDNISOLONE
     Dosage: 4TH SYSTEMIC TREATMENT: HIGH DOSE
     Dates: start: 20220920, end: 20221011
  7. PEMBROLIZUMAB [Suspect]
     Active Substance: PEMBROLIZUMAB
     Indication: B-cell lymphoma
     Dosage: 3RD SYSTEMIC TREATMENT
     Dates: start: 20220913, end: 20220913
  8. CYTARABINE [Suspect]
     Active Substance: CYTARABINE
     Indication: B-cell lymphoma
     Dosage: 2ND SYSTEMIC TREATMENT
     Dates: start: 20211116
  9. CARMUSTINE [Suspect]
     Active Substance: CARMUSTINE
     Indication: B-cell lymphoma
     Dosage: 2ND SYSTEMIC TREATMENT
     Dates: start: 20211116, end: 20220615
  10. ETOPOSIDE PHOSPHATE [Suspect]
     Active Substance: ETOPOSIDE PHOSPHATE
     Indication: B-cell lymphoma
     Dosage: 1ST SYSTEMIC TREATMENT
     Dates: start: 20210104, end: 20210510
  11. ETOPOSIDE PHOSPHATE [Suspect]
     Active Substance: ETOPOSIDE PHOSPHATE
     Dosage: 2ND SYSTEMIC TREATMENT
     Dates: start: 20211116, end: 20220615
  12. CISPLATIN [Suspect]
     Active Substance: CISPLATIN
     Indication: B-cell lymphoma
     Dosage: UNK
     Dates: start: 20211116, end: 20220615
  13. MELPHALAN [Suspect]
     Active Substance: MELPHALAN
     Indication: B-cell lymphoma
     Dosage: 2ND SYSTEMIC TREATMENT
     Dates: start: 20211116, end: 20220615
  14. CYCLOPHOSPHAMIDE [Suspect]
     Active Substance: CYCLOPHOSPHAMIDE
     Indication: B-cell lymphoma
     Dosage: 1ST SYSTEMIC TREATMENT
     Dates: start: 20210104, end: 20210510
  15. PREDNISONE [Suspect]
     Active Substance: PREDNISONE
     Indication: B-cell lymphoma
     Dosage: 1ST SYSTEMIC TREATMENT
     Dates: start: 20210104, end: 20210510

REACTIONS (1)
  - Disease progression [Unknown]

NARRATIVE: CASE EVENT DATE: 20220826
